FAERS Safety Report 6143167-X (Version None)
Quarter: 2009Q2

REPORT INFORMATION
  Report Type: 
  Country: None (occurrence: None)
  Receive Date: 20090403
  Receipt Date: 20090330
  Transmission Date: 20091009
  Serious: Yes (Hospitalization, Other)
  Sender: FDA-Public Use
  Company Number: US-BAYER-200914712NA

PATIENT
  Age: 69 Year
  Sex: Male
  Weight: 68 kg

DRUGS (16)
  1. SORAFENIB [Suspect]
     Indication: SMALL CELL LUNG CANCER STAGE UNSPECIFIED
     Dosage: TOTAL DAILY DOSE: 800 MG  UNIT DOSE: 200 MG
     Route: 048
     Dates: start: 20090127, end: 20090301
  2. TOPOTECAN [Suspect]
     Indication: SMALL CELL LUNG CANCER STAGE UNSPECIFIED
     Dosage: 2 DOSES OF 7.5 MG
     Route: 042
     Dates: start: 20090127
  3. TOPOTECAN [Suspect]
     Dosage: ONE DOSE OF 5.6 MG
     Route: 042
     Dates: end: 20090224
  4. COREG [Concomitant]
     Indication: HYPERTENSION
     Dosage: TOTAL DAILY DOSE: 6.25 MG
     Route: 048
     Dates: start: 20081125
  5. VERAPAMIL PM [Concomitant]
     Indication: HYPERTENSION
     Dosage: TOTAL DAILY DOSE: 300 MG
     Route: 048
     Dates: start: 20081125
  6. ALBUTEROL [Concomitant]
     Indication: DYSPNOEA
     Dosage: INHALENT; PRN
     Route: 017
     Dates: start: 20081125
  7. ZANTAC [Concomitant]
     Indication: GASTROOESOPHAGEAL REFLUX DISEASE
     Dosage: TOTAL DAILY DOSE: 300 MG
     Route: 048
     Dates: start: 20090120
  8. LOVASTATIN [Concomitant]
     Indication: HYPERLIPIDAEMIA
     Dosage: TOTAL DAILY DOSE: 20 MG
     Route: 048
     Dates: start: 20080705
  9. OXYBUTYNIN CHLORIDE [Concomitant]
     Indication: BLADDER SPASM
     Dosage: TOTAL DAILY DOSE: 5 MG
     Route: 048
     Dates: start: 20090120
  10. CALCIUM CARBONATE [Concomitant]
     Indication: MEDICAL DIET
     Dosage: TOTAL DAILY DOSE: 1500 MG
     Route: 048
     Dates: start: 20081125
  11. CLARITIN [Concomitant]
     Indication: MULTIPLE ALLERGIES
     Dosage: TOTAL DAILY DOSE: 10 MG
     Route: 048
     Dates: start: 20090120
  12. NICODERM CQ [Concomitant]
     Indication: SMOKING CESSATION THERAPY
     Dosage: TOTAL DAILY DOSE: 14 MG
     Route: 062
     Dates: start: 20090210
  13. PROCHLORPERAZINE MALEATE [Concomitant]
     Indication: NAUSEA
     Route: 048
     Dates: start: 20090120
  14. MEGACE [Concomitant]
     Indication: APPETITE DISORDER
     Dosage: TOTAL DAILY DOSE: 20 MG  UNIT DOSE: 40 MG
     Route: 048
     Dates: start: 20090210
  15. PREDNISONE [Concomitant]
     Indication: APPETITE DISORDER
     Dosage: TOTAL DAILY DOSE: 20 MG
     Route: 048
     Dates: start: 20090301
  16. PREDNISONE [Concomitant]
     Dosage: TOTAL DAILY DOSE: 10 MG
     Route: 048
     Dates: start: 20090224

REACTIONS (4)
  - ASTHENIA [None]
  - FAILURE TO THRIVE [None]
  - PULMONARY EMBOLISM [None]
  - THROMBOCYTOPENIA [None]
